FAERS Safety Report 7206891-3 (Version None)
Quarter: 2010Q4

REPORT INFORMATION
  Report Type: 
  Country: None (occurrence: None)
  Receive Date: 20101230
  Receipt Date: 20101230
  Transmission Date: 20110411
  Serious: Yes (Hospitalization)
  Sender: FDA-Public Use
  Company Number: None

PATIENT
  Sex: Female
  Weight: 102.0593 kg

DRUGS (16)
  1. LENALIDOMIDE [Suspect]
     Indication: HODGKIN'S DISEASE
     Dosage: 25MG QDAY PO
     Route: 048
     Dates: start: 20101029
  2. FENTENYL [Concomitant]
  3. ATIVAN [Concomitant]
  4. OXYCONTIN [Concomitant]
  5. OXYCODONE [Concomitant]
  6. MIRALAX [Concomitant]
  7. AMBIEN [Concomitant]
  8. ACYCLOVIR [Concomitant]
  9. ALBUTERAL PRN [Concomitant]
  10. TYLENOL-500 [Concomitant]
  11. ASPIRIN [Concomitant]
  12. BACLOFEN [Concomitant]
  13. GABAPENTIN [Concomitant]
  14. TESSELON PERLS [Concomitant]
  15. BENADRYL [Concomitant]
  16. HYDROXYSINE [Concomitant]

REACTIONS (7)
  - CONFUSIONAL STATE [None]
  - FAECAL INCONTINENCE [None]
  - HALLUCINATION [None]
  - INCOHERENT [None]
  - LETHARGY [None]
  - PAIN [None]
  - PRURITUS [None]
